FAERS Safety Report 8803113 (Version 2)
Quarter: 2012Q4

REPORT INFORMATION
  Report Type: 
  Country: JP (occurrence: JP)
  Receive Date: 20120924
  Receipt Date: 20121009
  Transmission Date: 20130627
  Serious: Yes (Other)
  Sender: FDA-Public Use
  Company Number: PHHY2012JP081256

PATIENT
  Age: 72 Year
  Sex: Male

DRUGS (9)
  1. VALSARTAN [Suspect]
     Indication: ESSENTIAL HYPERTENSION
     Dosage: 40 mg, daily
     Route: 048
     Dates: start: 200705, end: 200707
  2. VALSARTAN [Suspect]
     Dosage: UNK UKN, UNK
  3. AMLODIPINE [Concomitant]
     Indication: ESSENTIAL HYPERTENSION
     Dosage: 5 mg, daily
     Route: 048
     Dates: start: 200906, end: 201005
  4. ALLOPURINOL [Concomitant]
     Indication: HYPERURICAEMIA
     Dosage: 100 mg, daily
     Route: 048
     Dates: start: 1987, end: 200707
  5. ALLOPURINOL [Concomitant]
     Dosage: 100 mg, daily
     Route: 048
     Dates: start: 200906, end: 201005
  6. URINORM [Concomitant]
     Dosage: 100 mg, daily
  7. POTASSIUM CITRATE W/SODIUM CITRATE [Concomitant]
     Indication: HYPERURICAEMIA
     Dosage: 1 g, daily
     Route: 048
     Dates: start: 1987, end: 200707
  8. POTASSIUM CITRATE W/SODIUM CITRATE [Concomitant]
     Dosage: 1 mg, daily
     Route: 048
     Dates: start: 201009, end: 201102
  9. NIFEDIPINE [Concomitant]
     Dosage: 40 mg, daily

REACTIONS (5)
  - Erythema multiforme [Recovering/Resolving]
  - Rash erythematous [Recovering/Resolving]
  - Rash [Recovering/Resolving]
  - Gout [Recovered/Resolved]
  - Blood pressure increased [Recovering/Resolving]
